FAERS Safety Report 4717558-5 (Version None)
Quarter: 2005Q3

REPORT INFORMATION
  Report Type: 
  Country: None (occurrence: None)
  Receive Date: 20050719
  Receipt Date: 20040409
  Transmission Date: 20060218
  Serious: Yes (Other)
  Sender: FDA-Public Use
  Company Number: JP-MERCK-0404USA02188

PATIENT
  Age: 81 Year
  Sex: Female
  Weight: 40 kg

DRUGS (12)
  1. FOSAMAX [Suspect]
     Indication: OSTEOPOROSIS
     Route: 048
     Dates: start: 20040113, end: 20040114
  2. ADALAT [Concomitant]
     Indication: HYPERTENSION
     Route: 048
     Dates: start: 19980822
  3. NIVADIL [Concomitant]
     Indication: HYPERTENSION
     Route: 048
     Dates: start: 19980822
  4. BEVANTOLOL HYDROCHLORIDE [Concomitant]
     Indication: HYPERTENSION
     Route: 048
     Dates: start: 20020212
  5. GRANDAXIN [Concomitant]
     Indication: MENTAL DISORDER
     Route: 048
     Dates: start: 20000713
  6. SOLANAX [Concomitant]
     Indication: MENTAL DISORDER
     Route: 048
     Dates: start: 20000713
  7. MEVALOTIN [Concomitant]
     Indication: HYPERLIPIDAEMIA
     Route: 048
     Dates: start: 19990417
  8. FURTULON [Concomitant]
     Indication: BREAST CANCER
     Route: 048
  9. HYSRON [Concomitant]
     Indication: BREAST CANCER
     Route: 048
  10. PRIMPERAN INJ [Concomitant]
     Indication: GASTRITIS
     Route: 048
  11. ARTANE [Concomitant]
     Indication: PARKINSON'S DISEASE
     Route: 048
     Dates: start: 20020815
  12. MARZULENE [Concomitant]
     Indication: GASTRITIS
     Route: 048

REACTIONS (1)
  - ASTHENIA [None]
